FAERS Safety Report 9554977 (Version 2)
Quarter: 2013Q4

REPORT INFORMATION
  Report Type: Report from Study
  Country: NL (occurrence: NL)
  Receive Date: 20130926
  Receipt Date: 20131001
  Transmission Date: 20140711
  Serious: Yes (Hospitalization)
  Sender: FDA-Public Use
  Company Number: NL-ROCHE-1280176

PATIENT
  Age: 63 Year
  Sex: Male

DRUGS (4)
  1. CAPECITABINE [Suspect]
     Indication: GASTRIC CANCER
     Dosage: LAST DOSE PRIOR TO SAE 02/SEP/2013,?BID FOR 2 WEEKS, 3 WEEKS, 5 WEEKS
     Route: 048
     Dates: start: 20130325
  2. EPIRUBICIN [Suspect]
     Indication: GASTRIC CANCER
     Dosage: LAST DOSE PRIOR TO SAE 06/MAY/2013,
     Route: 042
     Dates: start: 20130323
  3. CISPLATIN [Suspect]
     Indication: GASTRIC CANCER
     Dosage: LAST DOSE PRIOR TO SAE 02/SEP/2013
     Route: 042
     Dates: start: 20130325
  4. ULCOGANT [Concomitant]
     Route: 065
     Dates: start: 20130905

REACTIONS (3)
  - Dyspepsia [Recovering/Resolving]
  - Malaise [Recovering/Resolving]
  - Gastrooesophageal reflux disease [Recovering/Resolving]
